FAERS Safety Report 19503111 (Version 1)
Quarter: 2021Q3

REPORT INFORMATION
  Report Type: Spontaneous
  Country: GB (occurrence: GB)
  Receive Date: 20210707
  Receipt Date: 20210707
  Transmission Date: 20211014
  Serious: Yes (Hospitalization)
  Sender: FDA-Public Use
  Company Number: GB-PERRIGO-21GB009054

PATIENT

DRUGS (1)
  1. PARACETAMOL [Suspect]
     Active Substance: ACETAMINOPHEN
     Indication: INTENTIONAL OVERDOSE
     Dosage: OVERDOSE OF 19 TABLETS
     Route: 065
     Dates: start: 20210623, end: 20210623

REACTIONS (2)
  - Intentional overdose [Unknown]
  - Analgesic drug level increased [Unknown]
